FAERS Safety Report 9520754 (Version 1)
Quarter: 2013Q1

REPORT INFORMATION
  Report Type: Spontaneous
  Country: US (occurrence: None)
  Receive Date: 20130305
  Receipt Date: 20130305
  Transmission Date: 20140127
  Serious: Yes (Hospitalization, Other)
  Sender: FDA-Public Use
  Company Number: 163-21880-12073290

PATIENT
  Age: 73 Year
  Sex: Male
  Weight: 79.83 kg

DRUGS (4)
  1. REVLIMID (LENALIDOMIDE) (CAPSULES) [Suspect]
     Indication: PLASMA CELL MYELOMA
     Dosage: 15 MG, 21 IN 21 D,  PO
     Route: 048
     Dates: start: 20120620
  2. JANUMET (JANUMET) (UNKNOWN) [Concomitant]
  3. GLYBURIDE (GLIBENCLAMIDE) (UNKNOWN) [Concomitant]
  4. INSULIN (INSULIN) (UNKNOWN) [Concomitant]

REACTIONS (4)
  - Hypersensitivity [None]
  - Rash generalised [None]
  - Pruritus [None]
  - Rectal haemorrhage [None]
